FAERS Safety Report 14067569 (Version 3)
Quarter: 2018Q2

REPORT INFORMATION
  Report Type: Spontaneous
  Country: US (occurrence: US)
  Receive Date: 20171009
  Receipt Date: 20180420
  Transmission Date: 20180711
  Serious: No
  Sender: FDA-Public Use
  Company Number: US-ACTELION-A-US2017-160648

PATIENT
  Age: 58 Year
  Sex: Male
  Weight: 68.48 kg

DRUGS (3)
  1. VELETRI [Suspect]
     Active Substance: EPOPROSTENOL
     Indication: PULMONARY HYPERTENSION
     Dosage: 79 NG/KG, PER MIN
     Route: 042
  2. SILDENAFIL CITRATE. [Concomitant]
     Active Substance: SILDENAFIL CITRATE
  3. COUMADIN [Concomitant]
     Active Substance: WARFARIN SODIUM

REACTIONS (8)
  - Cough [Unknown]
  - Rales [Unknown]
  - Wheezing [Unknown]
  - Urticaria [Unknown]
  - Hypersensitivity [Unknown]
  - Bronchitis [Unknown]
  - Swelling [Unknown]
  - Epistaxis [Unknown]

NARRATIVE: CASE EVENT DATE: 201709
